FAERS Safety Report 7570436-9 (Version None)
Quarter: 2011Q2

REPORT INFORMATION
  Report Type: 
  Country: None (occurrence: None)
  Receive Date: 20110624
  Receipt Date: 20110614
  Transmission Date: 20111010
  Serious: Yes (Other)
  Sender: FDA-Public Use
  Company Number: JP-ASTRAZENECA-2011SE37404

PATIENT
  Age: 71 Year
  Sex: Female

DRUGS (8)
  1. ASPIRIN [Concomitant]
     Route: 048
     Dates: start: 20090302
  2. ALLORIN [Concomitant]
     Route: 048
     Dates: start: 20100924
  3. CRESTOR [Suspect]
     Route: 048
     Dates: start: 20110514
  4. CALBLOCK [Concomitant]
     Route: 048
     Dates: start: 20100824
  5. AMARYL [Concomitant]
     Route: 048
     Dates: start: 20101112
  6. CRESTOR [Suspect]
     Route: 048
     Dates: start: 20100824, end: 20110513
  7. JANUVIA [Suspect]
     Route: 048
     Dates: start: 20110221
  8. MUCOSTA [Concomitant]
     Route: 048
     Dates: start: 20020424

REACTIONS (1)
  - BLOOD CREATININE INCREASED [None]
